FAERS Safety Report 6732216-3 (Version None)
Quarter: 2010Q2

REPORT INFORMATION
  Report Type: 
  Country: None (occurrence: None)
  Receive Date: 20100519
  Receipt Date: 20100511
  Transmission Date: 20101027
  Serious: Yes (Hospitalization)
  Sender: FDA-Public Use
  Company Number: A0848743A

PATIENT
  Sex: Female

DRUGS (12)
  1. TYKERB [Suspect]
     Dosage: 750MG PER DAY
     Route: 048
     Dates: start: 20091028, end: 20100507
  2. XELODA [Concomitant]
     Dosage: 800MG TWICE PER DAY
     Route: 065
     Dates: end: 20100507
  3. AMIODARONE [Concomitant]
     Route: 065
  4. WARFARIN SODIUM [Concomitant]
     Route: 065
  5. LASIX [Concomitant]
     Route: 065
  6. COREG [Concomitant]
     Route: 065
  7. GLUCOPHAGE [Concomitant]
     Route: 065
  8. GLYBURIDE [Concomitant]
     Route: 065
  9. NORVASC [Concomitant]
     Route: 065
  10. K-DUR [Concomitant]
     Route: 065
  11. ALTACE [Concomitant]
     Route: 065
  12. COUMADIN [Concomitant]
     Route: 065

REACTIONS (8)
  - ATRIAL FIBRILLATION [None]
  - BRADYCARDIA [None]
  - CARDIAC PACEMAKER INSERTION [None]
  - HEAD INJURY [None]
  - OEDEMA PERIPHERAL [None]
  - TORSADE DE POINTES [None]
  - TUMOUR MARKER INCREASED [None]
  - VENTRICULAR FIBRILLATION [None]
